FAERS Safety Report 24266601 (Version 5)
Quarter: 2024Q4

REPORT INFORMATION
  Report Type: Spontaneous
  Country: US (occurrence: US)
  Receive Date: 20240830
  Receipt Date: 20241122
  Transmission Date: 20250115
  Serious: No
  Sender: AMGEN
  Company Number: US-AMGEN-USASP2024171574

PATIENT
  Age: 42 Year
  Sex: Female
  Weight: 68.934 kg

DRUGS (13)
  1. TEPEZZA [Suspect]
     Active Substance: TEPROTUMUMAB-TRBW
     Indication: Toxic goitre
     Dosage: 700 MILLIGRAM (20 MG/KG),OVER 90 MINUTES (67 ML/HR)
     Route: 042
  2. TEPEZZA [Suspect]
     Active Substance: TEPROTUMUMAB-TRBW
     Indication: Thyroid disorder
     Dosage: 20 MILLIGRAM/KILOGRAM, Q3WK (TEPEZZA DOSING-INFUSE 20 MG/KG (1400 MG) INTRAVENOUSLY OVER 90 MINUTES
     Route: 042
  3. TEPEZZA [Suspect]
     Active Substance: TEPROTUMUMAB-TRBW
     Indication: Exophthalmos
     Dosage: 20 MILLIGRAM/KILOGRAM, Q3WK, (INFUSE 20 MG/KG (1400 MG) INTRAVENOUSLY OVER 90 MINUTES (67 ML/HR) VIA
     Route: 040
  4. TEPEZZA [Suspect]
     Active Substance: TEPROTUMUMAB-TRBW
     Dosage: 20 MILLIGRAM/KILOGRAM, Q3WK, (1400 MG), (INFUSE FINAL 6 DOSES INTRAVENOUSLY OVER 60 MINUTES (100 ML/
     Route: 040
  5. SODIUM CHLORIDE [Concomitant]
     Active Substance: SODIUM CHLORIDE
  6. DEXTROSE\SODIUM CHLORIDE [Concomitant]
     Active Substance: DEXTROSE\SODIUM CHLORIDE
  7. ZYRTEC [Concomitant]
     Active Substance: CETIRIZINE HYDROCHLORIDE
     Dosage: 10 MILLIGRAM
  8. NUVARING [Concomitant]
     Active Substance: ETHINYL ESTRADIOL\ETONOGESTREL
     Dosage: UNK, (12-015 MILLIGRAM), (VAG RING)
  9. SYNTHROID [Concomitant]
     Active Substance: LEVOTHYROXINE SODIUM
     Dosage: 88 MICROGRAM
  10. CHONDROITIN SULFATE A\GLUCOSAMINE [Concomitant]
     Active Substance: CHONDROITIN SULFATE A\GLUCOSAMINE
     Dosage: UNK, (250-200 MILLIGRAM)
  11. VITAMIN D3 [Concomitant]
     Active Substance: CHOLECALCIFEROL
     Dosage: 1250 MICROGRAM
  12. SODIUM CHLORIDE [Concomitant]
     Active Substance: SODIUM CHLORIDE
     Dosage: 0.9 PERCENT
  13. STERILE WATER [Concomitant]
     Active Substance: WATER

REACTIONS (6)
  - Diarrhoea [Unknown]
  - Nausea [Unknown]
  - Fatigue [Unknown]
  - Arthralgia [Unknown]
  - Back pain [Unknown]
  - Muscle spasms [Unknown]

NARRATIVE: CASE EVENT DATE: 20241001
